FAERS Safety Report 25747434 (Version 2)
Quarter: 2025Q3

REPORT INFORMATION
  Report Type: Spontaneous
  Country: CN (occurrence: CN)
  Receive Date: 20250901
  Receipt Date: 20250915
  Transmission Date: 20251021
  Serious: Yes (Hospitalization, Other)
  Sender: Vantive US Healthcare
  Company Number: CN-VANTIVE-2025VAN003857

PATIENT

DRUGS (1)
  1. EXTRANEAL [Suspect]
     Active Substance: CALCIUM CHLORIDE\ICODEXTRIN\MAGNESIUM CHLORIDE\SODIUM CHLORIDE\SODIUM LACTATE
     Route: 033

REACTIONS (5)
  - Peritoneal cloudy effluent [Unknown]
  - Intercepted product administration error [Unknown]
  - Product container issue [Unknown]
  - Device issue [Recovered/Resolved]
  - Peritoneal dialysis complication [Unknown]

NARRATIVE: CASE EVENT DATE: 20250815
